FAERS Safety Report 6728691-0 (Version None)
Quarter: 2010Q2

REPORT INFORMATION
  Report Type: 
  Country: None (occurrence: None)
  Receive Date: 20100517
  Receipt Date: 20100507
  Transmission Date: 20101027
  Serious: Yes (Other)
  Sender: FDA-Public Use
  Company Number: CA-ABBOTT-10P-028-0643489-00

PATIENT
  Sex: Female
  Weight: 56.296 kg

DRUGS (6)
  1. HUMIRA [Suspect]
     Indication: CROHN'S DISEASE
     Route: 058
     Dates: start: 20080611
  2. METHOTREXATE [Concomitant]
     Indication: DRUG USE FOR UNKNOWN INDICATION
     Route: 048
     Dates: end: 20100507
  3. ACEBUTOLOL [Concomitant]
     Indication: CARDIAC DISORDER
  4. MULTI-VITAMINS [Concomitant]
     Indication: DRUG USE FOR UNKNOWN INDICATION
     Route: 048
  5. FOLIC ACID [Concomitant]
     Indication: DRUG USE FOR UNKNOWN INDICATION
     Route: 048
  6. COUMADIN [Concomitant]
     Indication: DRUG USE FOR UNKNOWN INDICATION
     Dosage: 2.5 MG ONE AND THREE QUARTER TABLET PER DAY
     Route: 048

REACTIONS (7)
  - CARDIOMEGALY [None]
  - COUGH [None]
  - DYSPNOEA [None]
  - HYPERVENTILATION [None]
  - INTERNATIONAL NORMALISED RATIO DECREASED [None]
  - PULMONARY OEDEMA [None]
  - WEIGHT DECREASED [None]
